FAERS Safety Report 8476643-5 (Version None)
Quarter: 2012Q2

REPORT INFORMATION
  Report Type: 
  Country: None (occurrence: None)
  Receive Date: 20120628
  Receipt Date: 20120626
  Transmission Date: 20120825
  Serious: Yes (Other)
  Sender: FDA-Public Use
  Company Number: US-PFIZER INC-2012154089

PATIENT
  Age: 12 Year
  Sex: Female
  Weight: 33 kg

DRUGS (1)
  1. GENOTROPIN [Suspect]
     Indication: PREMATURE BABY
     Dosage: UNK
     Route: 058
     Dates: end: 20120401

REACTIONS (2)
  - SCOLIOSIS [None]
  - PNEUMONIA [None]
